FAERS Safety Report 6303800-6 (Version None)
Quarter: 2009Q3

REPORT INFORMATION
  Report Type: 
  Country: None (occurrence: None)
  Receive Date: 20090807
  Receipt Date: 20090807
  Transmission Date: 20100115
  Serious: No
  Sender: FDA-Public Use
  Company Number: None

PATIENT

DRUGS (1)
  1. SPORT FEVER ACTIVE ANTI-PERSPIRANT (INVISIBLE SOLID) BY ADIDAS [Suspect]

REACTIONS (4)
  - EXPIRED DRUG ADMINISTERED [None]
  - HEADACHE [None]
  - MALAISE [None]
  - PYREXIA [None]
